FAERS Safety Report 7627491-7 (Version None)
Quarter: 2011Q3

REPORT INFORMATION
  Report Type: 
  Country: None (occurrence: None)
  Receive Date: 20110721
  Receipt Date: 20110719
  Transmission Date: 20111222
  Serious: No
  Sender: FDA-Public Use
  Company Number: US-TEVA-291258USA

PATIENT
  Sex: Female
  Weight: 57.658 kg

DRUGS (1)
  1. AZILECT [Suspect]
     Indication: PARKINSON'S DISEASE
     Route: 048

REACTIONS (1)
  - DRUG INEFFECTIVE [None]
